FAERS Safety Report 14366852 (Version 1)
Quarter: 2018Q1

REPORT INFORMATION
  Report Type: Spontaneous
  Country: US (occurrence: US)
  Receive Date: 20180108
  Receipt Date: 20180108
  Transmission Date: 20180509
  Serious: No
  Sender: FDA-Public Use
  Company Number: None

PATIENT
  Age: 57 Year
  Sex: Male

DRUGS (1)
  1. HARVONI [Suspect]
     Active Substance: LEDIPASVIR\SOFOSBUVIR

REACTIONS (5)
  - Pyrexia [None]
  - Cough [None]
  - Exposure to communicable disease [None]
  - Influenza [None]
  - Diarrhoea [None]

NARRATIVE: CASE EVENT DATE: 20180104
